FAERS Safety Report 4979654-7 (Version None)
Quarter: 2006Q2

REPORT INFORMATION
  Report Type: 
  Country: None (occurrence: None)
  Receive Date: 20060421
  Receipt Date: 20050624
  Transmission Date: 20061013
  Serious: Yes (Hospitalization)
  Sender: FDA-Public Use
  Company Number: HQWYE707227JUN05

PATIENT
  Sex: Female

DRUGS (17)
  1. ENBREL [Suspect]
     Indication: RHEUMATOID ARTHRITIS
     Route: 058
     Dates: start: 20050603, end: 20060201
  2. ISONIAZID [Concomitant]
     Route: 065
     Dates: start: 20050603, end: 20050624
  3. PREDNISOLONE [Concomitant]
     Dosage: DOSE AND FREQUENCY UNKNOWN
     Route: 065
     Dates: start: 19970101
  4. PREDNISOLONE [Concomitant]
     Route: 048
     Dates: start: 20040301
  5. DOXAZOSIN MESYLATE [Concomitant]
     Route: 065
  6. MANIDIPINE HYDROCHLORIDE [Concomitant]
     Route: 065
  7. ONE-ALPHA [Concomitant]
     Route: 065
  8. PARIET [Concomitant]
     Route: 065
  9. LORNOXICAM [Concomitant]
     Route: 065
  10. GASTROM [Concomitant]
  11. LASIX [Concomitant]
  12. CYTOTEC [Concomitant]
  13. FERROMIA [Concomitant]
  14. RISEDRONIC ACID [Concomitant]
  15. ASPARTATE POTASSIUM [Concomitant]
  16. BUP-4 [Concomitant]
  17. BIOFERMIN [Concomitant]

REACTIONS (5)
  - DRUG HYPERSENSITIVITY [None]
  - INFECTION [None]
  - MENINGITIS [None]
  - PETECHIAE [None]
  - PURPURA [None]
